FAERS Safety Report 10018747 (Version 3)
Quarter: 2014Q2

REPORT INFORMATION
  Report Type: Spontaneous
  Country: JP (occurrence: JP)
  Receive Date: 20140318
  Receipt Date: 20140408
  Transmission Date: 20141212
  Serious: Yes (Hospitalization, Other)
  Sender: FDA-Public Use
  Company Number: JP-B.I. PHARMACEUTICALS,INC./RIDGEFIELD-2014-BI-05438NB

PATIENT
  Age: 83 Year
  Sex: Male
  Weight: 53 kg

DRUGS (2)
  1. PRAZAXA [Suspect]
     Indication: PRODUCT USED FOR UNKNOWN INDICATION
     Dosage: 220 MG
     Route: 048
     Dates: end: 20140204
  2. VASOLAN / VERAPAMIL HYDROCHLORIDE [Concomitant]
     Route: 065

REACTIONS (3)
  - Colitis ischaemic [Recovered/Resolved]
  - Intestinal obstruction [Unknown]
  - Haematochezia [Recovered/Resolved]
